FAERS Safety Report 16664021 (Version 1)
Quarter: 2019Q3

REPORT INFORMATION
  Report Type: Spontaneous
  Country: FR (occurrence: FR)
  Receive Date: 20190802
  Receipt Date: 20190802
  Transmission Date: 20191004
  Serious: Yes (Hospitalization, Other)
  Sender: FDA-Public Use
  Company Number: FR-MYLANLABS-2019M1072002

PATIENT
  Age: 68 Year
  Sex: Male

DRUGS (13)
  1. IMFINZI [Suspect]
     Active Substance: DURVALUMAB
     Indication: SQUAMOUS CELL CARCINOMA OF LUNG
     Dosage: 750 MG
     Route: 042
     Dates: start: 20181217
  2. SPECIAFOLDINE [Concomitant]
     Active Substance: FOLIC ACID
  3. PERINDOPRIL [Suspect]
     Active Substance: PERINDOPRIL
     Indication: HYPERTENSION
     Route: 048
     Dates: end: 20181218
  4. MIANSERIN [Suspect]
     Active Substance: MIANSERIN
     Indication: PRODUCT USED FOR UNKNOWN INDICATION
     Route: 048
     Dates: end: 20181218
  5. DOCETAXEL. [Suspect]
     Active Substance: DOCETAXEL
     Indication: PRODUCT USED FOR UNKNOWN INDICATION
     Dosage: 160 MG/8 ML WEEKLY
  6. KAYEXALATE [Concomitant]
     Active Substance: SODIUM POLYSTYRENE SULFONATE
  7. CACIT                              /00944201/ [Suspect]
     Active Substance: CALCIUM CARBONATE\CHOLECALCIFEROL
     Indication: PRODUCT USED FOR UNKNOWN INDICATION
     Dosage: 1000 MILLIGRAM, QD
     Route: 048
     Dates: end: 20181218
  8. ONDANSETRAN [Suspect]
     Active Substance: ONDANSETRON HYDROCHLORIDE
     Indication: PROPHYLAXIS
     Route: 048
     Dates: start: 20181022, end: 20181223
  9. PANTOPRAZOLE [Concomitant]
     Active Substance: PANTOPRAZOLE
     Indication: UPPER GASTROINTESTINAL HAEMORRHAGE
  10. PARACETAMOL [Concomitant]
     Active Substance: ACETAMINOPHEN
  11. ALLOPURINOL. [Suspect]
     Active Substance: ALLOPURINOL
     Indication: GOUT
     Dosage: 100 MILLIGRAM, QD
     Route: 048
  12. TINZAPARINE SODIQUE [Concomitant]
     Active Substance: TINZAPARIN SODIUM
  13. LYRICA [Concomitant]
     Active Substance: PREGABALIN

REACTIONS (5)
  - Respiratory failure [Recovered/Resolved]
  - Interstitial lung disease [Recovering/Resolving]
  - Cough [Recovering/Resolving]
  - Radiation pneumonitis [Unknown]
  - Pneumonitis [Unknown]

NARRATIVE: CASE EVENT DATE: 20181218
